FAERS Safety Report 5069347-2 (Version None)
Quarter: 2006Q3

REPORT INFORMATION
  Report Type: 
  Country: None (occurrence: None)
  Receive Date: 20060714
  Receipt Date: 20060329
  Transmission Date: 20061208
  Serious: No
  Sender: FDA-Public Use
  Company Number: 2006SP001436

PATIENT
  Sex: Male

DRUGS (5)
  1. LUNESTA [Suspect]
     Indication: INSOMNIA
     Dosage: 1 MG;HS;ORAL
     Route: 048
     Dates: start: 20060302, end: 20060328
  2. BLOOD PRESSURE [Concomitant]
  3. MEDICATION [Concomitant]
  4. CHOLESTEROL MEDICATION [Concomitant]
  5. AMBIEN [Concomitant]

REACTIONS (2)
  - DYSGEUSIA [None]
  - NIGHTMARE [None]
